FAERS Safety Report 16582528 (Version 7)
Quarter: 2022Q2

REPORT INFORMATION
  Report Type: Report from Study
  Country: US (occurrence: US)
  Receive Date: 20190717
  Receipt Date: 20220531
  Transmission Date: 20220721
  Serious: Yes (Hospitalization)
  Sender: FDA-Public Use
  Company Number: PHEH2019US029112

PATIENT
  Age: 70 Year
  Sex: Male
  Weight: 111 kg

DRUGS (41)
  1. KYMRIAH [Suspect]
     Active Substance: TISAGENLECLEUCEL
     Indication: Diffuse large B-cell lymphoma
     Dosage: 17 ML, ONCE/SINGLE (1.2E8 CAR.T POSITIVE TCELLS)
     Route: 042
     Dates: start: 20190620
  2. ZYLOPRIM [Concomitant]
     Active Substance: ALLOPURINOL
     Indication: Product used for unknown indication
     Dosage: 300 MG, QD
     Route: 048
     Dates: start: 20190621, end: 20190621
  3. DEXAMETHASONE [Concomitant]
     Active Substance: DEXAMETHASONE
     Indication: Product used for unknown indication
     Dosage: 10 MG, QD
     Route: 042
     Dates: start: 20190624, end: 20190628
  4. LOVENOX [Concomitant]
     Active Substance: ENOXAPARIN SODIUM
     Indication: Product used for unknown indication
     Dosage: 40 MG, QD
     Route: 058
     Dates: start: 20190624, end: 20190628
  5. HEPARIN [Concomitant]
     Active Substance: HEPARIN SODIUM
     Indication: Product used for unknown indication
     Dosage: 500 DF, ONCE/SINGLE
     Route: 065
     Dates: start: 20190628, end: 20190628
  6. ISAVUCONAZONIUM [Concomitant]
     Active Substance: ISAVUCONAZONIUM
     Indication: Product used for unknown indication
     Dosage: 372 MG, QD
     Route: 048
     Dates: start: 20190626, end: 20190628
  7. KEPPRA [Concomitant]
     Active Substance: LEVETIRACETAM
     Indication: Product used for unknown indication
     Dosage: 500 MG, QD
     Route: 048
     Dates: start: 20190621, end: 20190628
  8. KEPPRA [Concomitant]
     Active Substance: LEVETIRACETAM
     Dosage: 500 MG, BID
     Route: 048
  9. MEROPENEM [Concomitant]
     Active Substance: MEROPENEM
     Indication: Blood culture positive
     Dosage: 1 G, Q8H
     Route: 042
     Dates: start: 20190628
  10. TOPROL XL [Concomitant]
     Active Substance: METOPROLOL SUCCINATE
     Indication: Product used for unknown indication
     Dosage: 25 MG, QD
     Route: 048
     Dates: start: 20190627, end: 20190628
  11. LOPRESSOR [Concomitant]
     Active Substance: METOPROLOL TARTRATE
     Indication: Product used for unknown indication
     Dosage: 12.5 MG, BID
     Route: 048
     Dates: start: 20190624, end: 20190626
  12. K PHOS NEUTRAL [Concomitant]
     Active Substance: POTASSIUM PHOSPHATE, MONOBASIC\SODIUM PHOSPHATE, DIBASIC, ANHYDROUS\SODIUM PHOSPHATE, MONOBASIC, MON
     Indication: Product used for unknown indication
     Dosage: 250 MG, BID
     Route: 048
     Dates: start: 20190621, end: 20190624
  13. K PHOS NEUTRAL [Concomitant]
     Active Substance: POTASSIUM PHOSPHATE, MONOBASIC\SODIUM PHOSPHATE, DIBASIC, ANHYDROUS\SODIUM PHOSPHATE, MONOBASIC, MON
     Dosage: 500 MG, BID
     Route: 048
     Dates: start: 20190624, end: 20190628
  14. ZOSYN [Concomitant]
     Active Substance: PIPERACILLIN SODIUM\TAZOBACTAM SODIUM
     Indication: Neutropenia
     Dosage: 4.5 G, QD
     Route: 042
     Dates: start: 20190620, end: 20190620
  15. ZOSYN [Concomitant]
     Active Substance: PIPERACILLIN SODIUM\TAZOBACTAM SODIUM
     Indication: Pneumonia
     Dosage: 4.5 G, Q6H
     Route: 065
     Dates: start: 20190621, end: 20190622
  16. POTASSIUM PHOSPHATE [Concomitant]
     Active Substance: POTASSIUM PHOSPHATE
     Indication: Product used for unknown indication
     Dosage: 30 MMOL, ONCE/SINGLE
     Route: 042
     Dates: start: 20190624, end: 20190624
  17. SALINE [Concomitant]
     Active Substance: SODIUM CHLORIDE
     Indication: Product used for unknown indication
     Dosage: 15 ML, QID
     Route: 065
     Dates: start: 20190621, end: 20190628
  18. ACTEMRA [Concomitant]
     Active Substance: TOCILIZUMAB
     Indication: Product used for unknown indication
     Dosage: 800 MG, ONCE/SINGLE
     Route: 042
     Dates: start: 20190624, end: 20190624
  19. VALTREX [Concomitant]
     Active Substance: VALACYCLOVIR HYDROCHLORIDE
     Indication: Product used for unknown indication
     Dosage: 500 MG, BID
     Route: 048
     Dates: start: 20190621, end: 20190628
  20. VANCOCIN [Concomitant]
     Active Substance: VANCOMYCIN HYDROCHLORIDE
     Indication: Product used for unknown indication
     Dosage: 1500 MG, QD
     Route: 042
     Dates: start: 20190624, end: 20190624
  21. VANCOCIN [Concomitant]
     Active Substance: VANCOMYCIN HYDROCHLORIDE
     Dosage: 1500 MG, Q18H
     Route: 042
     Dates: start: 20190625, end: 20190627
  22. VANCOCIN [Concomitant]
     Active Substance: VANCOMYCIN HYDROCHLORIDE
     Dosage: 1500 MG, QD
     Route: 042
     Dates: start: 20190627, end: 20190627
  23. TYLENOL [Concomitant]
     Active Substance: ACETAMINOPHEN
     Indication: Pyrexia
     Dosage: 650 MG, Q4H
     Route: 048
     Dates: start: 20190621, end: 20190624
  24. TYLENOL [Concomitant]
     Active Substance: ACETAMINOPHEN
     Indication: Pain
  25. CATHFLO ACTIVASE [Concomitant]
     Active Substance: ALTEPLASE
     Indication: Product used for unknown indication
     Dosage: 2 MG, PRN
     Route: 065
     Dates: start: 20190621, end: 20190628
  26. TUMS [Concomitant]
     Active Substance: CALCIUM CARBONATE
     Indication: Dyspepsia
     Dosage: 500 MG, TID (PRN)
     Route: 048
     Dates: start: 20190621
  27. GADOTERIDOL [Concomitant]
     Active Substance: GADOTERIDOL
     Indication: Product used for unknown indication
     Dosage: 20 ML, QD
     Route: 042
     Dates: start: 20190621, end: 20190621
  28. MAGNESIUM SULFATE [Concomitant]
     Active Substance: MAGNESIUM SULFATE
     Indication: Constipation
     Dosage: 2 G, UNK
     Route: 042
     Dates: start: 20190621, end: 20190626
  29. MAGNESIUM SULFATE [Concomitant]
     Active Substance: MAGNESIUM SULFATE
     Dosage: 2 G, UNK
     Route: 042
     Dates: start: 20190624, end: 20190628
  30. VFEND [Concomitant]
     Active Substance: VORICONAZOLE
     Indication: Product used for unknown indication
     Dosage: 200 MG, BID
     Route: 048
     Dates: start: 20190621, end: 20190626
  31. ZOVIRAX [Concomitant]
     Active Substance: ACYCLOVIR
     Indication: Product used for unknown indication
     Dosage: 1 DF, BID
     Route: 048
  32. OSCAL [Concomitant]
     Active Substance: CALCIUM CARBONATE
     Indication: Product used for unknown indication
     Dosage: 500 MG, QD
     Route: 048
  33. CRESEMBA [Concomitant]
     Active Substance: ISAVUCONAZONIUM SULFATE
     Indication: Product used for unknown indication
     Dosage: 372 MG, QD
     Route: 048
  34. LEVAQUIN [Concomitant]
     Active Substance: LEVOFLOXACIN
     Indication: Product used for unknown indication
     Dosage: 500 MG, QD
     Route: 048
  35. MAGNESIUM OXIDE [Concomitant]
     Active Substance: MAGNESIUM OXIDE
     Indication: Product used for unknown indication
     Dosage: 1 DF, BID
     Route: 048
  36. ROXICODONE [Concomitant]
     Active Substance: OXYCODONE HYDROCHLORIDE
     Indication: Pain
     Dosage: 1 DF, Q6H
     Route: 065
  37. COMPAZINE [Concomitant]
     Active Substance: PROCHLORPERAZINE MALEATE
     Indication: Nausea
     Dosage: 1 DF, Q6H
     Route: 048
  38. ULTRAM [Concomitant]
     Active Substance: TRAMADOL HYDROCHLORIDE
     Indication: Pain
     Dosage: 50 MG, Q6H
     Route: 048
  39. CYCLOPHOSPHAMIDE [Concomitant]
     Active Substance: CYCLOPHOSPHAMIDE
     Indication: Chemotherapy
     Dosage: UNK
     Route: 065
     Dates: start: 2015
  40. CYCLOPHOSPHAMIDE [Concomitant]
     Active Substance: CYCLOPHOSPHAMIDE
     Dosage: UNK
     Route: 065
     Dates: start: 20190612, end: 20190614
  41. FLUDARABINE [Concomitant]
     Active Substance: FLUDARABINE PHOSPHATE
     Indication: Chemotherapy
     Dosage: UNK
     Route: 065
     Dates: start: 20190612, end: 20190614

REACTIONS (30)
  - Pericarditis [Unknown]
  - Chest pain [Recovered/Resolved]
  - Gait disturbance [Unknown]
  - Pericardial effusion [Unknown]
  - Troponin increased [Unknown]
  - Ischaemia [Unknown]
  - Left ventricular hypertrophy [Unknown]
  - Atrial flutter [Unknown]
  - Headache [Recovered/Resolved]
  - Fatigue [Recovered/Resolved]
  - Hypotension [Unknown]
  - Pyrexia [Recovered/Resolved]
  - Electrocardiogram QT prolonged [Unknown]
  - Neurotoxicity [Recovered/Resolved]
  - Anaemia [Unknown]
  - Cytokine release syndrome [Recovered/Resolved]
  - Confusional state [Unknown]
  - Tachycardia [Unknown]
  - Immune effector cell-associated neurotoxicity syndrome [Recovered/Resolved]
  - Mental status changes [Recovering/Resolving]
  - C-reactive protein increased [Recovered/Resolved]
  - Serum ferritin increased [Unknown]
  - Malaise [Unknown]
  - Febrile neutropenia [Unknown]
  - Staphylococcal bacteraemia [Unknown]
  - Haemoglobin decreased [Unknown]
  - Memory impairment [Unknown]
  - Pneumonia [Unknown]
  - Hypomagnesaemia [Unknown]
  - Platelet count decreased [Unknown]

NARRATIVE: CASE EVENT DATE: 20190620
